FAERS Safety Report 5997033-0 (Version None)
Quarter: 2008Q4

REPORT INFORMATION
  Report Type: 
  Country: None (occurrence: None)
  Receive Date: 20081212
  Receipt Date: 20081031
  Transmission Date: 20090506
  Serious: No
  Sender: FDA-Public Use
  Company Number: US-ABBOTT-08P-163-0485061-00

PATIENT
  Sex: Female
  Weight: 67.192 kg

DRUGS (1)
  1. HUMIRA [Suspect]
     Indication: RHEUMATOID ARTHRITIS
     Dates: start: 20031031, end: 20081003

REACTIONS (4)
  - LYMPHOCYTE COUNT INCREASED [None]
  - NASOPHARYNGITIS [None]
  - TOOTH EXTRACTION [None]
  - TOOTH INFECTION [None]
